FAERS Safety Report 6832313-8 (Version None)
Quarter: 2010Q3

REPORT INFORMATION
  Report Type: 
  Country: None (occurrence: None)
  Receive Date: 20100712
  Receipt Date: 20100630
  Transmission Date: 20110219
  Serious: Yes (Hospitalization, Other)
  Sender: FDA-Public Use
  Company Number: DE-ELI_LILLY_AND_COMPANY-DE201007000012

PATIENT
  Sex: Female

DRUGS (11)
  1. TADALAFIL [Suspect]
     Dosage: UNK, UNKNOWN
     Route: 065
  2. TARGIN [Concomitant]
     Dosage: UNK, 2/D
  3. RAMIPRIL [Concomitant]
     Dosage: 5 MG, DAILY (1/D)
  4. LASIX [Concomitant]
     Dosage: 40 MG, 4/D
  5. KALIUM ^VERLA^ [Concomitant]
     Dosage: UNK, 3/D
  6. REVATIO [Concomitant]
     Dosage: 20 MG, 3/D
  7. SPIRIVA [Concomitant]
     Dosage: UNK, DAILY (1/D)
  8. OMEPRAZOLE [Concomitant]
     Dosage: 20 MG, DAILY (1/D)
  9. NOVALGIN [Concomitant]
     Dosage: 20 D/F(DROPS), 4/D
  10. BISOPROLOL [Concomitant]
     Dosage: 50 MG, 2/D
  11. XIPAMIDE [Concomitant]
     Dosage: 10 MG, DAILY (1/D)

REACTIONS (5)
  - CARDIAC FAILURE [None]
  - HOSPITALISATION [None]
  - LOWER GASTROINTESTINAL HAEMORRHAGE [None]
  - OFF LABEL USE [None]
  - UPPER GASTROINTESTINAL HAEMORRHAGE [None]
